FAERS Safety Report 6970503-4 (Version None)
Quarter: 2010Q3

REPORT INFORMATION
  Report Type: 
  Country: None (occurrence: None)
  Receive Date: 20100908
  Receipt Date: 20100830
  Transmission Date: 20110219
  Serious: Yes (Hospitalization)
  Sender: FDA-Public Use
  Company Number: CA-ROCHE-712336

PATIENT
  Sex: Male
  Weight: 84 kg

DRUGS (25)
  1. BEVACIZUMAB [Suspect]
     Dosage: PERMANENTLY DISCONTINUED.
     Route: 042
     Dates: start: 20100518, end: 20100719
  2. CAPECITABINE [Suspect]
     Dosage: BATCH LOT: COMMERCIAL SUPPLY. TEMPORARILY INTERRUPTED.
     Route: 048
     Dates: start: 20100519, end: 20100617
  3. CAPECITABINE [Suspect]
     Dosage: PERMANENTLY DISCONTINUED.
     Route: 048
     Dates: end: 20100719
  4. NITRO-DUR [Concomitant]
     Dates: start: 20040401
  5. ASPIRIN [Concomitant]
     Dates: start: 20040401, end: 20100626
  6. ASPIRIN [Concomitant]
  7. RAMIPRIL [Concomitant]
     Dates: start: 20040401, end: 20100626
  8. RAMIPRIL [Concomitant]
  9. OXAZEPAM [Concomitant]
     Dates: start: 20070101, end: 20100626
  10. OXAZEPAM [Concomitant]
     Dates: start: 20100627
  11. CRESTOR [Concomitant]
     Dates: start: 20040401, end: 20100626
  12. CRESTOR [Concomitant]
  13. COLACE [Concomitant]
     Dates: start: 20100420, end: 20100426
  14. COLACE [Concomitant]
  15. DILAUDID [Concomitant]
     Route: 048
     Dates: start: 20100617, end: 20100626
  16. DILAUDID [Concomitant]
     Route: 048
     Dates: start: 20100701
  17. DILAUDID [Concomitant]
     Route: 048
     Dates: start: 20100716
  18. LACTULOSE [Concomitant]
     Dates: start: 20100617, end: 20100626
  19. LACTULOSE [Concomitant]
     Dates: start: 20100630
  20. DECADRON [Concomitant]
     Dates: start: 20100617, end: 20100626
  21. DECADRON [Concomitant]
     Dates: start: 20100626
  22. MAVERAN [Concomitant]
     Route: 042
     Dates: start: 20100617, end: 20100626
  23. MAVERAN [Concomitant]
     Route: 042
     Dates: start: 20100626, end: 20100704
  24. GRAVOL TAB [Concomitant]
     Dates: start: 20100701
  25. DOMPERIDONE [Concomitant]
     Dates: start: 20100708

REACTIONS (2)
  - INTESTINAL OBSTRUCTION [None]
  - SMALL INTESTINAL OBSTRUCTION [None]
